FAERS Safety Report 9200188 (Version 1)
Quarter: 2013Q1

REPORT INFORMATION
  Report Type: Spontaneous
  Country: JP (occurrence: JP)
  Receive Date: 20130329
  Receipt Date: 20130329
  Transmission Date: 20140127
  Serious: Yes (Hospitalization)
  Sender: FDA-Public Use
  Company Number: JP-ROCHE-1191709

PATIENT
  Age: 86 Year
  Sex: Male
  Weight: 53 kg

DRUGS (9)
  1. AVASTIN [Suspect]
     Indication: COLON CANCER METASTATIC
     Dosage: DOSAGE IS UNCERTAIN.
     Route: 041
     Dates: start: 20121025
  2. IRINOTECAN HYDROCHLORIDE TRIHYDRATE [Suspect]
     Indication: COLON CANCER METASTATIC
     Route: 041
     Dates: start: 20121025
  3. TS-1 [Suspect]
     Indication: COLON CANCER METASTATIC
     Route: 048
     Dates: start: 20121025
  4. CONIEL [Concomitant]
     Indication: HYPERTENSION
     Route: 048
  5. ADALAT CR [Concomitant]
     Route: 048
  6. ZYLORIC [Concomitant]
     Indication: HYPERURICAEMIA
     Route: 048
  7. PARIET [Concomitant]
     Route: 048
  8. CARDENALIN [Concomitant]
     Route: 048
  9. ARGAMATE [Concomitant]
     Indication: RENAL DISORDER
     Route: 048

REACTIONS (1)
  - Lung disorder [Recovered/Resolved]
